FAERS Safety Report 15259200 (Version 1)
Quarter: 2018Q3

REPORT INFORMATION
  Report Type: Spontaneous
  Country: US (occurrence: US)
  Receive Date: 20180718
  Receipt Date: 20180718
  Transmission Date: 20181010
  Serious: Yes (Hospitalization, Other)
  Sender: FDA-Public Use
  Company Number: None

PATIENT
  Age: 72 Year
  Sex: Male
  Weight: 102.06 kg

DRUGS (7)
  1. BIOTIN [Concomitant]
     Active Substance: BIOTIN
  2. LEUCOVORIN CALCIUM. [Concomitant]
     Active Substance: LEUCOVORIN CALCIUM
  3. METFORMIN HCL [Concomitant]
     Active Substance: METFORMIN HYDROCHLORIDE
  4. METHOTREXATE. [Concomitant]
     Active Substance: METHOTREXATE
  5. VITAMIN D3 [Concomitant]
     Active Substance: CHOLECALCIFEROL
  6. MRI WITH CONTRAST GADOLINIUM [Suspect]
     Active Substance: GADOLINIUM
  7. PREDNISONE. [Concomitant]
     Active Substance: PREDNISONE

REACTIONS (11)
  - Rash [None]
  - Cough [None]
  - Arthralgia [None]
  - Headache [None]
  - Drug clearance decreased [None]
  - Hot flush [None]
  - Rash pruritic [None]
  - Gait disturbance [None]
  - Secretion discharge [None]
  - Dysphonia [None]
  - Pulmonary embolism [None]

NARRATIVE: CASE EVENT DATE: 20180101
